FAERS Safety Report 13463884 (Version 1)
Quarter: 2017Q2

REPORT INFORMATION
  Report Type: Spontaneous
  Country: US (occurrence: US)
  Receive Date: 20170420
  Receipt Date: 20170420
  Transmission Date: 20170830
  Serious: Yes (Other)
  Sender: FDA-Public Use
  Company Number: US-ROCHE-715266

PATIENT
  Age: 31 Year
  Sex: Female
  Weight: 62.1 kg

DRUGS (1)
  1. ACCUTANE [Suspect]
     Active Substance: ISOTRETINOIN
     Indication: PRODUCT USED FOR UNKNOWN INDICATION
     Dosage: 10 JUL 1998 WAS HER 20TH WEEK ON ACCUTANE
     Route: 065
     Dates: start: 19980221, end: 19980710

REACTIONS (4)
  - Irritable bowel syndrome [Unknown]
  - Inflammatory bowel disease [Unknown]
  - Acne [Unknown]
  - Colitis ulcerative [Unknown]

NARRATIVE: CASE EVENT DATE: 19980304
